FAERS Safety Report 15120058 (Version 1)
Quarter: 2018Q3

REPORT INFORMATION
  Report Type: Spontaneous
  Country: US (occurrence: US)
  Receive Date: 20180709
  Receipt Date: 20180709
  Transmission Date: 20181010
  Serious: No
  Sender: FDA-Public Use
  Company Number: US-CELGENEUS-USA-20180700655

PATIENT
  Sex: Female

DRUGS (2)
  1. APREMILAST [Suspect]
     Active Substance: APREMILAST
     Indication: PSORIASIS
     Route: 048
     Dates: start: 201805
  2. APREMILAST [Suspect]
     Active Substance: APREMILAST
     Route: 048
     Dates: start: 2018

REACTIONS (6)
  - Arthralgia [Unknown]
  - Drug dose omission [Unknown]
  - Frequent bowel movements [Recovered/Resolved]
  - Soft tissue inflammation [Unknown]
  - Pain in extremity [Recovered/Resolved]
  - Joint swelling [Unknown]

NARRATIVE: CASE EVENT DATE: 2018
